FAERS Safety Report 6045021-0 (Version None)
Quarter: 2009Q1

REPORT INFORMATION
  Report Type: 
  Country: None (occurrence: None)
  Receive Date: 20090116
  Receipt Date: 20090116
  Transmission Date: 20090719
  Serious: Yes (Life-Threatening, Hospitalization, Disabling)
  Sender: FDA-Public Use
  Company Number: None

PATIENT
  Sex: Female
  Weight: 51.2565 kg

DRUGS (2)
  1. ENBREL [Suspect]
     Indication: MIXED CONNECTIVE TISSUE DISEASE
     Dosage: INJECT - SURECLICK 1 X PER WK INJECT-ARM
     Route: 042
     Dates: start: 20080301
  2. METHOTREXATE [Suspect]
     Dosage: TABLETS #8 1 X PER WK ORAL
     Route: 048
     Dates: start: 20080801

REACTIONS (5)
  - ALPHA HAEMOLYTIC STREPTOCOCCAL INFECTION [None]
  - DEFORMITY [None]
  - LIMB DEFORMITY [None]
  - SKIN GRAFT [None]
  - STREPTOCOCCAL SEPSIS [None]
